FAERS Safety Report 5301033-3 (Version None)
Quarter: 2007Q2

REPORT INFORMATION
  Report Type: 
  Country: None (occurrence: None)
  Receive Date: 20070418
  Receipt Date: 20070410
  Transmission Date: 20071010
  Serious: Yes (Death, Life-Threatening, Hospitalization)
  Sender: FDA-Public Use
  Company Number: US-ABBOTT-06P-163-0329169-00

PATIENT
  Sex: Female
  Weight: 56.75 kg

DRUGS (6)
  1. HUMIRA [Suspect]
     Indication: RHEUMATOID ARTHRITIS
     Route: 058
     Dates: start: 20030101, end: 20041201
  2. HUMIRA [Suspect]
     Route: 058
     Dates: start: 20050901, end: 20051101
  3. FENTANYL [Concomitant]
     Indication: PAIN
     Route: 062
     Dates: start: 20050101, end: 20050501
  4. PREDNISONE TAB [Concomitant]
     Indication: ARTHRITIS
     Dosage: 5 MG QD AND 10 MG QOD
     Route: 048
     Dates: start: 20050101
  5. MORPHINE SULFATE [Concomitant]
     Indication: PAIN
     Route: 048
     Dates: start: 20050501
  6. IRBESARTAN [Concomitant]
     Indication: DRUG USE FOR UNKNOWN INDICATION

REACTIONS (3)
  - NON-SMALL CELL LUNG CANCER STAGE IV [None]
  - PAIN [None]
  - SPINAL COLUMN STENOSIS [None]
